FAERS Safety Report 9988492 (Version 1)
Quarter: 2014Q1

REPORT INFORMATION
  Report Type: Spontaneous
  Country: US (occurrence: US)
  Receive Date: 20140310
  Receipt Date: 20140310
  Transmission Date: 20141002
  Serious: No
  Sender: FDA-Public Use
  Company Number: US-BIOGENIDEC-2014BI017662

PATIENT
  Sex: Female
  Weight: 54 kg

DRUGS (18)
  1. TECFIDERA [Suspect]
     Indication: PRODUCT USED FOR UNKNOWN INDICATION
     Route: 048
     Dates: start: 201306
  2. BACLOFEN [Concomitant]
  3. CARISOPRODOL [Concomitant]
  4. DOCUSATE [Concomitant]
  5. NAPROXEN [Concomitant]
  6. OXYCODONE [Concomitant]
  7. GALANTAMINE [Concomitant]
  8. METHACARBAMOL [Concomitant]
  9. MEMANTINE [Concomitant]
  10. FISH OIL [Concomitant]
  11. OMEGA 3 FATTY ACIDS [Concomitant]
  12. LUTEIN [Concomitant]
  13. B COMPLEX [Concomitant]
  14. VITAMIN B-12 [Concomitant]
  15. BIOTIN [Concomitant]
  16. DALFAMPRIDINE [Concomitant]
  17. CHOLECALCIFEROL [Concomitant]
  18. VITAMIN D 3 [Concomitant]

REACTIONS (2)
  - Headache [Not Recovered/Not Resolved]
  - Alopecia [Not Recovered/Not Resolved]
